FAERS Safety Report 7281997-1 (Version None)
Quarter: 2011Q1

REPORT INFORMATION
  Report Type: 
  Country: None (occurrence: None)
  Receive Date: 20110208
  Receipt Date: 20110204
  Transmission Date: 20110831
  Serious: Yes (Life-Threatening)
  Sender: FDA-Public Use
  Company Number: JP-PFIZER INC-2011026480

PATIENT
  Age: 64 Year
  Sex: Female

DRUGS (11)
  1. LENDORMIN [Concomitant]
     Dosage: UNK
  2. CELESTAMINE TAB [Concomitant]
     Dosage: UNK
  3. THYRADIN [Concomitant]
     Dosage: UNK
  4. LYRICA [Suspect]
     Indication: PAIN IN EXTREMITY
     Dosage: 25 MG DAILY
     Route: 048
     Dates: start: 20110118, end: 20110201
  5. PIMENOL [Concomitant]
     Dosage: UNK
  6. RENAGEL [Concomitant]
     Dosage: UNK
  7. PURSENNID [Concomitant]
     Dosage: UNK
  8. RISUMIC [Concomitant]
     Dosage: UNK
  9. OMEPRAL [Concomitant]
     Dosage: UNK
  10. OPALMON [Concomitant]
     Dosage: UNK
  11. ALESION [Concomitant]
     Dosage: UNK

REACTIONS (2)
  - BLOOD POTASSIUM INCREASED [None]
  - INCREASED APPETITE [None]
